FAERS Safety Report 9335107 (Version 2)
Quarter: 2013Q2

REPORT INFORMATION
  Report Type: Spontaneous
  Country: US (occurrence: US)
  Receive Date: 20130606
  Receipt Date: 20130611
  Transmission Date: 20140414
  Serious: Yes (Other)
  Sender: FDA-Public Use
  Company Number: US-GLAXOSMITHKLINE-A1025362A

PATIENT
  Age: 60 Year
  Sex: Male

DRUGS (12)
  1. RYTHMOL SR [Suspect]
     Indication: ATRIAL FIBRILLATION
     Dosage: 225MG THREE TIMES PER DAY
     Route: 048
     Dates: start: 2006
  2. GLUCOSAMINE SULFATE [Concomitant]
  3. DIAZEPAM [Concomitant]
  4. SKELAXIN [Concomitant]
  5. PROTONIX [Concomitant]
  6. PERCOCET [Concomitant]
  7. DILTIAZEM [Concomitant]
  8. VITAMIN E [Concomitant]
  9. VITAMIN C [Concomitant]
  10. VITAMIN B12 [Concomitant]
  11. ONE-A-DAY MEN^S VITAMINS [Concomitant]
  12. BABY ASPIRIN [Concomitant]

REACTIONS (2)
  - Atrial fibrillation [Recovered/Resolved]
  - Asthma [Recovered/Resolved]
